FAERS Safety Report 10659567 (Version 5)
Quarter: 2015Q2

REPORT INFORMATION
  Report Type: Spontaneous
  Country: US (occurrence: US)
  Receive Date: 20141217
  Receipt Date: 20150423
  Transmission Date: 20150821
  Serious: Yes (Hospitalization)
  Sender: FDA-Public Use
  Company Number: US-009507513-1110USA03597

PATIENT
  Sex: Male
  Weight: 81.63 kg

DRUGS (1)
  1. PROPECIA [Suspect]
     Active Substance: FINASTERIDE
     Indication: ALOPECIA
     Dosage: 1 MG, QD
     Route: 048
     Dates: start: 200702, end: 200712

REACTIONS (18)
  - Anxiety [Not Recovered/Not Resolved]
  - Epididymitis [Unknown]
  - Arthralgia [Unknown]
  - Urethral syndrome [Unknown]
  - Depression [Not Recovered/Not Resolved]
  - Terminal dribbling [Unknown]
  - Ejaculation disorder [Unknown]
  - Ejaculation failure [Unknown]
  - Arthroscopy [Unknown]
  - Spermatocele [Unknown]
  - Cognitive disorder [Unknown]
  - Urine flow decreased [Unknown]
  - Libido decreased [Unknown]
  - Testicular pain [Unknown]
  - Sexual dysfunction [Unknown]
  - Epididymal cyst [Unknown]
  - Nephrolithiasis [Unknown]
  - Erectile dysfunction [Unknown]

NARRATIVE: CASE EVENT DATE: 2007
